FAERS Safety Report 8980046 (Version 2)
Quarter: 2014Q2

REPORT INFORMATION
  Report Type: Spontaneous
  Country: DK (occurrence: DK)
  Receive Date: 20121221
  Receipt Date: 20140512
  Transmission Date: 20141212
  Serious: Yes (Other)
  Sender: FDA-Public Use
  Company Number: PHHY2012DK115216

PATIENT
  Age: 84 Year
  Sex: Female

DRUGS (4)
  1. ZOMETA [Suspect]
     Indication: PLASMA CELL MYELOMA
     Dosage: 4 MG / 100 ML
     Route: 042
     Dates: start: 20070907
  2. ALENDRONATE [Suspect]
     Indication: OSTEOPOROSIS
     Dosage: 70 MG (70 MG EVERY 14 DAY)
     Route: 048
     Dates: start: 2006
  3. DEXAMETHASON [Concomitant]
     Indication: PLASMA CELL MYELOMA
     Dosage: UNK UKN, UNK
  4. ALKERAN [Concomitant]
     Indication: PLASMA CELL MYELOMA
     Dosage: UNK UKN, UNK

REACTIONS (4)
  - Osteonecrosis of jaw [Recovered/Resolved]
  - Purulent discharge [Recovered/Resolved]
  - Pain in jaw [Recovered/Resolved]
  - Primary sequestrum [Unknown]
